FAERS Safety Report 17314605 (Version 4)
Quarter: 2025Q3

REPORT INFORMATION
  Report Type: Spontaneous
  Country: EU (occurrence: EU)
  Receive Date: 20200124
  Receipt Date: 20250723
  Transmission Date: 20251021
  Serious: Yes (Hospitalization, Other)
  Sender: MYLAN
  Company Number: EU-002147023-NVSC2019PL031866

PATIENT
  Age: 60 Year
  Sex: Female

DRUGS (20)
  1. METFORMIN [Suspect]
     Active Substance: METFORMIN HYDROCHLORIDE
     Indication: Diabetes mellitus
     Dosage: 850 MILLIGRAM, QD
  2. FLUDARABINE [Suspect]
     Active Substance: FLUDARABINE PHOSPHATE
     Indication: Product used for unknown indication
     Dosage: 42.5 MG, QD (1-3 DAY)
  3. FLUDARABINE [Suspect]
     Active Substance: FLUDARABINE PHOSPHATE
     Dosage: 40 MG, QD (1-3 DAY)
  4. SIMVASTATIN [Suspect]
     Active Substance: SIMVASTATIN
     Indication: Hypercholesterolaemia
     Dosage: 20 MILLIGRAM, QD
  5. AMOXICILLIN\CLAVULANIC ACID [Suspect]
     Active Substance: AMOXICILLIN\CLAVULANIC ACID
     Indication: Product used for unknown indication
     Dosage: 2000 MILLIGRAM, QD
  6. DEXAMETHASONE [Suspect]
     Active Substance: DEXAMETHASONE
     Indication: Product used for unknown indication
     Dosage: 12 MG, QD (1-7 DAY)
  7. DEXAMETHASONE [Suspect]
     Active Substance: DEXAMETHASONE
     Dosage: 40 MG, QD (DAY 1)
  8. RITUXIMAB [Suspect]
     Active Substance: RITUXIMAB
     Indication: Product used for unknown indication
     Dosage: 640 MG, QD (DAY 1)
  9. RITUXIMAB [Suspect]
     Active Substance: RITUXIMAB
     Dosage: 600 MG, QD (DAY 1)
  10. RITUXIMAB [Suspect]
     Active Substance: RITUXIMAB
     Dosage: 650 MG, QD (DAY 1)
  11. RITUXIMAB [Suspect]
     Active Substance: RITUXIMAB
     Dosage: 850 MG, QD (DAY 1)
  12. CYCLOPHOSPHAMIDE [Suspect]
     Active Substance: CYCLOPHOSPHAMIDE
     Indication: Product used for unknown indication
     Dosage: 400 MG, QD (1-3 DAY)
  13. CYCLOPHOSPHAMIDE [Suspect]
     Active Substance: CYCLOPHOSPHAMIDE
     Dosage: 1000 MG, QD (DAY 1)
  14. CYCLOPHOSPHAMIDE [Suspect]
     Active Substance: CYCLOPHOSPHAMIDE
     Dosage: 425 MG, QD (1-3 DAY)
  15. CYCLOPHOSPHAMIDE [Suspect]
     Active Substance: CYCLOPHOSPHAMIDE
     Dosage: 1300 MG, QD (DAY 1)
  16. CIPROFLOXACIN [Suspect]
     Active Substance: CIPROFLOXACIN
     Indication: Product used for unknown indication
     Dosage: 1000 MILLIGRAM, QD
  17. FILGRASTIM [Suspect]
     Active Substance: FILGRASTIM
     Indication: Product used for unknown indication
  18. METHYLPREDNISOLONE [Suspect]
     Active Substance: METHYLPREDNISOLONE
     Indication: Product used for unknown indication
  19. RAMIPRIL [Suspect]
     Active Substance: RAMIPRIL
     Indication: Hypertension
     Dosage: 5 MILLIGRAM, QD
  20. FLUCONAZOLE [Suspect]
     Active Substance: FLUCONAZOLE
     Indication: Product used for unknown indication
     Dosage: 100 MILLIGRAM, QD

REACTIONS (16)
  - Pulmonary embolism [Unknown]
  - Embolism [Unknown]
  - Chronic lymphocytic leukaemia [Unknown]
  - Heart rate increased [Unknown]
  - Fatigue [Unknown]
  - Tachycardia [Unknown]
  - Dyspnoea exertional [Unknown]
  - Chest pain [Unknown]
  - Pyrexia [Unknown]
  - Blood disorder [Unknown]
  - Malaise [Unknown]
  - Breath sounds abnormal [Unknown]
  - Neutropenia [Unknown]
  - Haemolytic anaemia [Unknown]
  - Haemolysis [Recovered/Resolved]
  - Chronic myeloid leukaemia recurrent [Unknown]
